FAERS Safety Report 6808936-9 (Version None)
Quarter: 2010Q2

REPORT INFORMATION
  Report Type: 
  Country: None (occurrence: None)
  Receive Date: 20100630
  Receipt Date: 20091101
  Transmission Date: 20101027
  Serious: No
  Sender: FDA-Public Use
  Company Number: US-PFIZER INC-2009270937

PATIENT
  Sex: Female
  Weight: 89.811 kg

DRUGS (5)
  1. TIKOSYN [Suspect]
     Indication: ATRIAL FIBRILLATION
     Dosage: 125 UG, UNK
     Route: 048
     Dates: start: 20090301
  2. TOPROL-XL [Concomitant]
     Indication: HYPERTENSION
     Dosage: UNK
  3. BENICAR [Concomitant]
     Indication: HYPERTENSION
     Dosage: UNK
  4. CAPOTEN [Concomitant]
     Indication: HYPERTENSION
     Dosage: UNK
  5. LASIX [Concomitant]
     Indication: HYPERTENSION
     Dosage: UNK

REACTIONS (1)
  - DIARRHOEA [None]
